FAERS Safety Report 12878045 (Version 3)
Quarter: 2016Q4

REPORT INFORMATION
  Report Type: Report from Study
  Country: US (occurrence: US)
  Receive Date: 20161024
  Receipt Date: 20161215
  Transmission Date: 20170207
  Serious: Yes (Hospitalization, Other)
  Sender: FDA-Public Use
  Company Number: US-SA-2015SA194792

PATIENT
  Age: 48 Year
  Sex: Female

DRUGS (2)
  1. LEMTRADA [Suspect]
     Active Substance: ALEMTUZUMAB
     Indication: MULTIPLE SCLEROSIS
     Route: 041
     Dates: start: 20151109, end: 20151113
  2. AUBAGIO [Concomitant]
     Active Substance: TERIFLUNOMIDE

REACTIONS (20)
  - Anal incontinence [Recovered/Resolved]
  - Sleep disorder [Recovered/Resolved]
  - Memory impairment [Not Recovered/Not Resolved]
  - Fatigue [Not Recovered/Not Resolved]
  - Fall [Recovered/Resolved]
  - Heart rate increased [Recovered/Resolved]
  - Gastric disorder [Not Recovered/Not Resolved]
  - Infection [Recovering/Resolving]
  - Bleeding time prolonged [Recovering/Resolving]
  - Speech disorder [Not Recovered/Not Resolved]
  - Weight decreased [Unknown]
  - Urinary incontinence [Recovered/Resolved]
  - Dehydration [Recovered/Resolved]
  - Multiple sclerosis relapse [Recovered/Resolved]
  - Peripheral swelling [Not Recovered/Not Resolved]
  - Gait disturbance [Not Recovered/Not Resolved]
  - Feeding disorder [Not Recovered/Not Resolved]
  - Decreased appetite [Not Recovered/Not Resolved]
  - Irritable bowel syndrome [Recovering/Resolving]
  - Blister [Unknown]

NARRATIVE: CASE EVENT DATE: 201511
